FAERS Safety Report 9886824 (Version 4)
Quarter: 2014Q1

REPORT INFORMATION
  Report Type: Spontaneous
  Country: US (occurrence: US)
  Receive Date: 20140210
  Receipt Date: 20140325
  Transmission Date: 20141002
  Serious: Yes (Other)
  Sender: FDA-Public Use
  Company Number: US-RB-063202-14

PATIENT
  Age: 38 Year
  Sex: Female

DRUGS (11)
  1. SUBOXONE TABLET [Suspect]
     Indication: PAIN
     Dosage: DOSING DETAILS UNKNOWN
     Route: 065
  2. SUBOXONE TABLET [Suspect]
     Indication: DRUG DEPENDENCE
     Dosage: DOSING DETAILS UNKNOWN
     Route: 065
  3. SUBOXONE FILM [Suspect]
     Indication: PAIN
     Dosage: SUBOXONE FILM; TAPERED DOWN FROM 2 MG THREE TIMES A DAY AT UNKNOWN INCREMENTS
     Route: 060
     Dates: start: 201401, end: 201401
  4. SUBOXONE FILM [Suspect]
     Indication: DRUG DEPENDENCE
     Dosage: SUBOXONE FILM
     Route: 060
     Dates: start: 20140210
  5. XANAX [Suspect]
     Indication: ANXIETY
     Dosage: DOSING DETAILS UNKNOWN
     Route: 048
     Dates: start: 2004, end: 20140210
  6. OXYCODONE [Suspect]
     Indication: PAIN
     Route: 065
  7. PAXIL [Concomitant]
     Indication: DEPRESSION
     Route: 048
     Dates: start: 2006
  8. TRAZODONE [Concomitant]
     Indication: POST-TRAUMATIC STRESS DISORDER
     Route: 048
     Dates: start: 2006
  9. PROTONIX [Concomitant]
     Indication: GASTROOESOPHAGEAL REFLUX DISEASE
     Route: 060
     Dates: start: 2006
  10. VISTARIL [Concomitant]
     Indication: POST-TRAUMATIC STRESS DISORDER
     Dosage: DOSING DETAILS UNKNOWN
     Route: 065
     Dates: start: 2006
  11. VISTARIL [Concomitant]
     Indication: POST-TRAUMATIC STRESS DISORDER
     Dosage: DOSING DETAILS UNKNOWN
     Route: 065
     Dates: start: 2006

REACTIONS (14)
  - Off label use [Unknown]
  - Drug dependence [Unknown]
  - Victim of sexual abuse [Recovered/Resolved]
  - Panic attack [Recovered/Resolved]
  - Hyperhidrosis [Recovered/Resolved]
  - Heart rate increased [Recovered/Resolved]
  - Abdominal pain upper [Recovered/Resolved]
  - Muscle spasms [Recovered/Resolved]
  - Decreased appetite [Recovered/Resolved]
  - Abdominal discomfort [Recovered/Resolved]
  - Feeling abnormal [Recovered/Resolved]
  - Suicidal ideation [Recovered/Resolved]
  - Drug dependence [Recovered/Resolved]
  - Constipation [Not Recovered/Not Resolved]
